FAERS Safety Report 9302001 (Version 3)
Quarter: 2014Q3

REPORT INFORMATION
  Report Type: Spontaneous
  Country: US (occurrence: US)
  Receive Date: 20130521
  Receipt Date: 20140911
  Transmission Date: 20150326
  Serious: No
  Sender: FDA-Public Use
  Company Number: US-009507513-1305USA012275

PATIENT
  Sex: Male

DRUGS (1)
  1. PROPECIA [Suspect]
     Active Substance: FINASTERIDE
     Indication: ALOPECIA
     Dosage: 1 MG, QD
     Route: 048
     Dates: start: 1998

REACTIONS (12)
  - Hormone level abnormal [Unknown]
  - Penile size reduced [Unknown]
  - Anxiety [Unknown]
  - Erectile dysfunction [Not Recovered/Not Resolved]
  - Sexual dysfunction [Not Recovered/Not Resolved]
  - Brain injury [Unknown]
  - Nephrolithiasis [Unknown]
  - Libido decreased [Unknown]
  - Testicular disorder [Unknown]
  - Social avoidant behaviour [Unknown]
  - Penis injury [Unknown]
  - Depression [Unknown]

NARRATIVE: CASE EVENT DATE: 1998
